FAERS Safety Report 7040193-3 (Version None)
Quarter: 2010Q4

REPORT INFORMATION
  Report Type: 
  Country: None (occurrence: None)
  Receive Date: 20101012
  Receipt Date: 20101007
  Transmission Date: 20110411
  Serious: Yes (Hospitalization, Other)
  Sender: FDA-Public Use
  Company Number: BR-SANOFI-AVENTIS-2010SA061267

PATIENT
  Age: 12 Year
  Sex: Male
  Weight: 84 kg

DRUGS (5)
  1. LANTUS [Suspect]
     Route: 058
     Dates: start: 20030101
  2. OPTIPEN [Suspect]
     Dates: end: 20101007
  3. APIDRA [Suspect]
     Dosage: 8-12 IU
     Route: 058
     Dates: start: 20040101
  4. INSULIN PEN NOS [Suspect]
  5. ANTIBIOTICS [Concomitant]

REACTIONS (5)
  - HEADACHE [None]
  - HYPERGLYCAEMIA [None]
  - INFECTION [None]
  - KETOACIDOSIS [None]
  - VOMITING [None]
